FAERS Safety Report 9159813 (Version 7)
Quarter: 2013Q3

REPORT INFORMATION
  Report Type: Report from Study
  Country: US (occurrence: US)
  Receive Date: 20130313
  Receipt Date: 20130827
  Transmission Date: 20140515
  Serious: Yes (Hospitalization)
  Sender: FDA-Public Use
  Company Number: US-VERTEX PHARMACEUTICALS INC.-2013-003381

PATIENT
  Age: 51 Year
  Sex: Female

DRUGS (4)
  1. VX-950 (TELAPREVIR) [Suspect]
     Indication: HEPATITIS C
     Dosage: UNK
     Route: 048
     Dates: start: 20130306, end: 20130529
  2. PEGASYS [Suspect]
     Indication: HEPATITIS C
     Dosage: 90 ?G/KG, QW
     Route: 058
     Dates: start: 20130306, end: 20130823
  3. RIBAVIRIN [Suspect]
     Indication: HEPATITIS C
     Dosage: UNK
     Route: 048
     Dates: start: 20130306
  4. RIBAVIRIN [Suspect]
     Dosage: 200 MG, QD
     Route: 048

REACTIONS (16)
  - Lung infection [Recovered/Resolved]
  - White blood cell count decreased [Not Recovered/Not Resolved]
  - Arthritis [Not Recovered/Not Resolved]
  - Dyspnoea [Not Recovered/Not Resolved]
  - Headache [Not Recovered/Not Resolved]
  - Dizziness [Not Recovered/Not Resolved]
  - Dyspepsia [Not Recovered/Not Resolved]
  - Myalgia [Not Recovered/Not Resolved]
  - Weight decreased [Not Recovered/Not Resolved]
  - Decreased appetite [Not Recovered/Not Resolved]
  - Tongue ulceration [Not Recovered/Not Resolved]
  - Nasal ulcer [Not Recovered/Not Resolved]
  - Fatigue [Not Recovered/Not Resolved]
  - Vomiting [Not Recovered/Not Resolved]
  - Nausea [Not Recovered/Not Resolved]
  - Haemoglobin decreased [Not Recovered/Not Resolved]
